FAERS Safety Report 7044823-1 (Version None)
Quarter: 2010Q4

REPORT INFORMATION
  Report Type: 
  Country: None (occurrence: None)
  Receive Date: 20101014
  Receipt Date: 20101001
  Transmission Date: 20110411
  Serious: Yes (Life-Threatening, Hospitalization, Other)
  Sender: FDA-Public Use
  Company Number: PHHO2010PT10767

PATIENT
  Sex: Female

DRUGS (2)
  1. FTY 720 FTY+ [Suspect]
     Indication: MULTIPLE SCLEROSIS
     Dosage: 0.5MG
     Route: 048
     Dates: start: 20100426, end: 20100713
  2. METHYLPREDNISOLONE [Suspect]
     Indication: MULTIPLE SCLEROSIS RELAPSE
     Dosage: UNK
     Dates: start: 20100711, end: 20100715

REACTIONS (14)
  - ABDOMINAL PAIN [None]
  - BILIARY DILATATION [None]
  - CHOLANGITIS ACUTE [None]
  - CHOLECYSTECTOMY [None]
  - ESCHERICHIA INFECTION [None]
  - INFLAMMATORY MARKER INCREASED [None]
  - JAUNDICE [None]
  - LIVER FUNCTION TEST ABNORMAL [None]
  - MECHANICAL VENTILATION [None]
  - MULTIPLE SCLEROSIS RELAPSE [None]
  - PNEUMONIA ASPIRATION [None]
  - PNEUMOTHORAX [None]
  - PYREXIA [None]
  - QUADRIPARESIS [None]
